FAERS Safety Report 23585228 (Version 7)
Quarter: 2024Q2

REPORT INFORMATION
  Report Type: Spontaneous
  Country: CA (occurrence: None)
  Receive Date: 20240301
  Receipt Date: 20240501
  Transmission Date: 20240715
  Serious: Yes (Other)
  Sender: FDA-Public Use
  Company Number: CA-PFIZER INC-202400031152

PATIENT
  Age: 64 Year
  Sex: Female

DRUGS (8)
  1. METHOTREXATE [Suspect]
     Active Substance: METHOTREXATE
     Indication: Sjogren^s syndrome
     Dates: start: 2010
  2. METHOTREXATE [Suspect]
     Active Substance: METHOTREXATE
     Indication: Systemic lupus erythematosus
     Dates: start: 2010, end: 2011
  3. METHOTREXATE [Suspect]
     Active Substance: METHOTREXATE
     Dates: start: 2011
  4. METHOTREXATE [Suspect]
     Active Substance: METHOTREXATE
     Dates: start: 201102
  5. METHOTREXATE [Suspect]
     Active Substance: METHOTREXATE
     Dosage: REDUCED
     Dates: start: 2012
  6. METHOTREXATE [Suspect]
     Active Substance: METHOTREXATE
     Dates: start: 202311
  7. METOPROLOL [Concomitant]
     Active Substance: METOPROLOL
  8. PANTOPRAZOLE [Concomitant]
     Active Substance: PANTOPRAZOLE

REACTIONS (12)
  - Pneumonia [Unknown]
  - Transfusion-related circulatory overload [Recovered/Resolved]
  - Drug ineffective for unapproved indication [Unknown]
  - Off label use [Unknown]
  - Alveolitis [Not Recovered/Not Resolved]
  - Infection [Unknown]
  - Back pain [Not Recovered/Not Resolved]
  - White blood cell count decreased [Not Recovered/Not Resolved]
  - Illness [Recovering/Resolving]
  - Cough [Recovering/Resolving]
  - Productive cough [Not Recovered/Not Resolved]
  - Sputum discoloured [Recovering/Resolving]

NARRATIVE: CASE EVENT DATE: 20100101
